FAERS Safety Report 26077019 (Version 1)
Quarter: 2025Q4

REPORT INFORMATION
  Report Type: Spontaneous
  Country: US (occurrence: US)
  Receive Date: 20251121
  Receipt Date: 20251121
  Transmission Date: 20260117
  Serious: No
  Sender: PFIZER
  Company Number: US-PFIZER INC-PV202300194206

PATIENT
  Age: 82 Year
  Sex: Female
  Weight: 56.236 kg

DRUGS (4)
  1. IBRANCE [Suspect]
     Active Substance: PALBOCICLIB
     Indication: Breast cancer female
     Dosage: 150
  2. IBRANCE [Suspect]
     Active Substance: PALBOCICLIB
     Indication: Lung neoplasm malignant
     Dosage: 125 MG, CYCLIC (TAKE 1 TABLET BY MOUTH ONCE DAILY, DAYS 1 THRU 21 OF 28 DAY CYCLE)
     Route: 048
  3. IBRANCE [Suspect]
     Active Substance: PALBOCICLIB
     Dosage: 100 MG BIG HUGE TABLET; TOOK 21 DAYS ON AND 7 DAYS OFF
     Dates: start: 202311, end: 20251025
  4. CELEBREX [Concomitant]
     Active Substance: CELECOXIB
     Dosage: 1-2 P.O.Q. DAY (PER ORAL ONCE A DAY)
     Route: 048

REACTIONS (9)
  - Malaise [Unknown]
  - Fatigue [Unknown]
  - General physical health deterioration [Unknown]
  - Bedridden [Unknown]
  - Somnolence [Unknown]
  - Weight fluctuation [Unknown]
  - Illness [Unknown]
  - Loss of personal independence in daily activities [Unknown]
  - Off label use [Unknown]
